FAERS Safety Report 5818298-1 (Version None)
Quarter: 2008Q3

REPORT INFORMATION
  Report Type: 
  Country: None (occurrence: None)
  Receive Date: 20080717
  Receipt Date: 20080708
  Transmission Date: 20090109
  Serious: Yes (Hospitalization, Other)
  Sender: FDA-Public Use
  Company Number: 2008JP003133

PATIENT
  Age: 85 Year
  Sex: Female

DRUGS (5)
  1. VESICARE [Suspect]
     Indication: HYPERTONIC BLADDER
     Dosage: 2.5 MG, UID/QD, ORAL
     Route: 048
     Dates: start: 20080529, end: 20080630
  2. PERDIPINE  (NICARDIPINE)     TABLET, 10 MG [Concomitant]
  3. URSO (URSODEOXYCHOLIC ACID) TABLET [Concomitant]
  4. NITOROL (ISOSORBIDE DINITRATE) CAPSULE [Concomitant]
  5. ROHYPNOL (FLUNITRAZEPAM) TABLET [Concomitant]

REACTIONS (1)
  - SINUS BRADYCARDIA [None]
